FAERS Safety Report 4990330-7 (Version None)
Quarter: 2006Q2

REPORT INFORMATION
  Report Type: 
  Country: None (occurrence: None)
  Receive Date: 20060503
  Receipt Date: 20060427
  Transmission Date: 20061013
  Serious: Yes (Other)
  Sender: FDA-Public Use
  Company Number: 2006AP02014

PATIENT
  Age: 60 Year
  Sex: Female

DRUGS (5)
  1. DIPRIVAN [Suspect]
     Indication: SEDATION
     Route: 042
     Dates: start: 20060330
  2. MEROPEN [Suspect]
     Route: 042
     Dates: start: 20060329, end: 20060410
  3. SOKUSIDON [Concomitant]
     Route: 042
     Dates: start: 20060329, end: 20060410
  4. MINOPEN [Concomitant]
     Route: 042
     Dates: start: 20060329, end: 20060410
  5. INOVAN [Concomitant]
     Route: 042
     Dates: start: 20060329

REACTIONS (1)
  - JAUNDICE [None]
